FAERS Safety Report 17640730 (Version 2)
Quarter: 2020Q2

REPORT INFORMATION
  Report Type: Spontaneous
  Country: US (occurrence: US)
  Receive Date: 20200407
  Receipt Date: 20200407
  Transmission Date: 20200713
  Serious: Yes (Other)
  Sender: FDA-Public Use
  Company Number: US-PFIZER INC-2020124626

PATIENT
  Age: 66 Year
  Sex: Female
  Weight: 72.57 kg

DRUGS (2)
  1. ANBESOL MAXIMUM STRENGTH [Suspect]
     Active Substance: BENZOCAINE
     Indication: DENTAL DISCOMFORT
  2. ANBESOL MAXIMUM STRENGTH [Suspect]
     Active Substance: BENZOCAINE
     Indication: TOOTHACHE
     Dosage: UNK, AS NEEDED

REACTIONS (10)
  - Face injury [Unknown]
  - Deformity [Unknown]
  - Headache [Unknown]
  - Fall [Recovered/Resolved]
  - Fall [Recovered/Resolved]
  - Product container issue [Unknown]
  - Haematoma [Unknown]
  - Facial paralysis [Unknown]
  - Speech disorder [Unknown]
  - Pain [Unknown]

NARRATIVE: CASE EVENT DATE: 201908
